FAERS Safety Report 6525798-8 (Version None)
Quarter: 2010Q1

REPORT INFORMATION
  Report Type: 
  Country: None (occurrence: None)
  Receive Date: 20100104
  Receipt Date: 20091230
  Transmission Date: 20100710
  Serious: Yes (Hospitalization)
  Sender: FDA-Public Use
  Company Number: A0837171A

PATIENT
  Sex: Male
  Weight: 21 kg

DRUGS (1)
  1. CLAVULIN [Suspect]
     Indication: PHARYNGITIS
     Dosage: 7.5ML TWICE PER DAY
     Route: 048
     Dates: start: 20091228

REACTIONS (3)
  - DIARRHOEA [None]
  - PYREXIA [None]
  - TONSILLITIS [None]
